FAERS Safety Report 17787707 (Version 4)
Quarter: 2020Q3

REPORT INFORMATION
  Report Type: Spontaneous
  Country: CN (occurrence: CN)
  Receive Date: 20200514
  Receipt Date: 20200813
  Transmission Date: 20201105
  Serious: Yes (Hospitalization)
  Sender: FDA-Public Use
  Company Number: CN-CELGENEUS-CHN-20200502935

PATIENT
  Age: 46 Year
  Sex: Male
  Weight: 85 kg

DRUGS (13)
  1. ABRAXANE [Suspect]
     Active Substance: PACLITAXEL
     Dosage: 188 MILLIGRAM
     Route: 041
     Dates: start: 20200110, end: 20200110
  2. CARBOPLATIN. [Suspect]
     Active Substance: CARBOPLATIN
     Dosage: 562.5 MILLIGRAM
     Route: 041
     Dates: start: 20200514, end: 20200514
  3. CARBOPLATIN. [Suspect]
     Active Substance: CARBOPLATIN
     Indication: NON-SMALL CELL LUNG CANCER
     Dosage: 750 MILLIGRAM
     Route: 041
     Dates: start: 20191218, end: 20191218
  4. COENZYME Q10 [Concomitant]
     Active Substance: DIETARY SUPPLEMENT\UBIDECARENONE
     Indication: BLOOD CREATINE PHOSPHOKINASE INCREASED
     Dosage: 5 MILLIGRAM
     Route: 048
     Dates: start: 20200424
  5. ABRAXANE [Suspect]
     Active Substance: PACLITAXEL
     Indication: NON-SMALL CELL LUNG CANCER
     Dosage: 189 MILLIGRAM
     Route: 041
     Dates: start: 20191218, end: 20191218
  6. ABRAXANE [Suspect]
     Active Substance: PACLITAXEL
     Dosage: 189 MILLIGRAM
     Route: 041
     Dates: start: 20200102, end: 20200102
  7. ABRAXANE [Suspect]
     Active Substance: PACLITAXEL
     Dosage: 146 MILLIGRAM
     Route: 041
     Dates: start: 20200514, end: 20200514
  8. SERPLULIMAB. [Suspect]
     Active Substance: SERPLULIMAB
     Indication: NON-SMALL CELL LUNG CANCER
     Dosage: 364.5 MILLIGRAM
     Route: 041
     Dates: start: 20191218, end: 20191218
  9. SERPLULIMAB. [Suspect]
     Active Substance: SERPLULIMAB
     Dosage: 364.5 MILLIGRAM
     Route: 041
     Dates: start: 20200110, end: 20200110
  10. SERPLULIMAB. [Suspect]
     Active Substance: SERPLULIMAB
     Route: 041
     Dates: start: 20200514, end: 20200514
  11. CARBOPLATIN. [Suspect]
     Active Substance: CARBOPLATIN
     Dosage: 549 MILLIGRAM
     Route: 041
     Dates: start: 20200110, end: 20200110
  12. ABRAXANE [Suspect]
     Active Substance: PACLITAXEL
     Dosage: 192 MILLIGRAM
     Route: 041
     Dates: start: 20191225, end: 20191225
  13. ABRAXANE [Suspect]
     Active Substance: PACLITAXEL
     Dosage: 142.5 MILLIGRAM
     Route: 041
     Dates: start: 20200117, end: 20200117

REACTIONS (1)
  - Autoimmune myocarditis [Recovering/Resolving]

NARRATIVE: CASE EVENT DATE: 20200424
